FAERS Safety Report 7970238-5 (Version None)
Quarter: 2011Q4

REPORT INFORMATION
  Report Type: 
  Country: None (occurrence: None)
  Receive Date: 20111212
  Receipt Date: 20111130
  Transmission Date: 20120403
  Serious: Yes (Other)
  Sender: FDA-Public Use
  Company Number: US-MYLANLABS-2011S1024700

PATIENT
  Age: 88 Year
  Sex: Female

DRUGS (1)
  1. FENTANYL-100 [Suspect]
     Indication: BONE PAIN
     Dosage: CHANGED Q72H
     Route: 062
     Dates: start: 20090101, end: 20111129

REACTIONS (2)
  - OVERDOSE [None]
  - ABNORMAL BEHAVIOUR [None]
